FAERS Safety Report 11918960 (Version 2)
Quarter: 2016Q3

REPORT INFORMATION
  Report Type: Spontaneous
  Country: US (occurrence: US)
  Receive Date: 20160115
  Receipt Date: 20160907
  Transmission Date: 20161109
  Serious: Yes (Hospitalization)
  Sender: FDA-Public Use
  Company Number: US-JNJFOC-20151205577

PATIENT
  Age: 40 Year
  Sex: Male

DRUGS (4)
  1. CIPRO [Suspect]
     Active Substance: CIPROFLOXACIN HYDROCHLORIDE
     Indication: LOCALISED INFECTION
     Route: 048
     Dates: start: 20061204, end: 20061214
  2. CIPRO [Suspect]
     Active Substance: CIPROFLOXACIN HYDROCHLORIDE
     Indication: LOCALISED INFECTION
     Route: 048
     Dates: start: 20040823, end: 20040920
  3. CIPRO [Suspect]
     Active Substance: CIPROFLOXACIN HYDROCHLORIDE
     Indication: LOCALISED INFECTION
     Route: 048
     Dates: start: 20040910, end: 20040924
  4. LEVAQUIN [Suspect]
     Active Substance: LEVOFLOXACIN
     Indication: LOCALISED INFECTION
     Route: 048
     Dates: start: 20040810, end: 20040824

REACTIONS (2)
  - Neuropathy peripheral [Not Recovered/Not Resolved]
  - Musculoskeletal pain [Unknown]

NARRATIVE: CASE EVENT DATE: 200408
